FAERS Safety Report 9612782 (Version 1)
Quarter: 2013Q4

REPORT INFORMATION
  Report Type: Spontaneous
  Country: DE (occurrence: DE)
  Receive Date: 20131010
  Receipt Date: 20131010
  Transmission Date: 20140711
  Serious: Yes (Congenital Anomaly)
  Sender: FDA-Public Use
  Company Number: GXKR2013DE003179

PATIENT
  Sex: 0

DRUGS (1)
  1. LAMOTRIGINE [Suspect]
     Dosage: MATERNAL DOSE: 200 [MG/D ]/ INITIAL 150 MG/D, AB 20. SSW 200MG/D
     Route: 064

REACTIONS (1)
  - Polydactyly [Recovered/Resolved with Sequelae]
